FAERS Safety Report 21304225 (Version 1)
Quarter: 2022Q3

REPORT INFORMATION
  Report Type: Spontaneous
  Country: US (occurrence: None)
  Receive Date: 20220907
  Receipt Date: 20220907
  Transmission Date: 20221026
  Serious: No
  Sender: FDA-Public Use
  Company Number: US-ARIS GLOBAL-202107-1146

PATIENT
  Sex: Female

DRUGS (6)
  1. OXERVATE [Suspect]
     Active Substance: CENEGERMIN-BKBJ
     Indication: Neurotrophic keratopathy
     Route: 047
     Dates: start: 20200928, end: 20201123
  2. OXERVATE [Suspect]
     Active Substance: CENEGERMIN-BKBJ
     Route: 047
     Dates: start: 20210701
  3. POLYTRIM [Concomitant]
     Active Substance: POLYMYXIN B SULFATE\TRIMETHOPRIM SULFATE
     Dosage: 10000-1/ ML
  4. PREDNISOLONE [Concomitant]
     Active Substance: PREDNISOLONE
  5. LUMIGAN [Concomitant]
     Active Substance: BIMATOPROST
  6. OXYGEN [Concomitant]
     Active Substance: OXYGEN

REACTIONS (1)
  - Off label use [Unknown]
